FAERS Safety Report 6843005-3 (Version None)
Quarter: 2010Q3

REPORT INFORMATION
  Report Type: 
  Country: None (occurrence: None)
  Receive Date: 20100714
  Receipt Date: 20071114
  Transmission Date: 20110219
  Serious: No
  Sender: FDA-Public Use
  Company Number: US-PFIZER INC-2007065932

PATIENT
  Sex: Female
  Weight: 61.7 kg

DRUGS (1)
  1. CHANTIX [Suspect]
     Indication: SMOKING CESSATION THERAPY
     Route: 048
     Dates: start: 20070711, end: 20071104

REACTIONS (5)
  - ABNORMAL DREAMS [None]
  - DRUG EFFECT DECREASED [None]
  - HEADACHE [None]
  - INSOMNIA [None]
  - NAUSEA [None]
